FAERS Safety Report 4948777-0 (Version None)
Quarter: 2006Q1

REPORT INFORMATION
  Report Type: 
  Country: None (occurrence: None)
  Receive Date: 20060315
  Receipt Date: 20060223
  Transmission Date: 20060701
  Serious: Yes (Hospitalization, Other)
  Sender: FDA-Public Use
  Company Number: US200602001069

PATIENT
  Age: 75 Year
  Sex: Female
  Weight: 76.6 kg

DRUGS (5)
  1. FORTEO [Suspect]
     Indication: OSTEOPOROSIS
     Dosage: 20 UG, DAILY (1/D),
     Dates: start: 20050901
  2. FORTEO [Concomitant]
  3. NORVASC /DEN/ (AMLODIPINE BESILATE) [Concomitant]
  4. HYDROCHLOROTHIAZIDE [Concomitant]
  5. CRESTOR [Concomitant]

REACTIONS (6)
  - CAROTID ARTERY DISEASE [None]
  - CAROTID ARTERY OCCLUSION [None]
  - CAROTID BRUIT [None]
  - DYSPNOEA [None]
  - PHARMACEUTICAL PRODUCT COMPLAINT [None]
  - SCAR [None]
